FAERS Safety Report 17813919 (Version 5)
Quarter: 2022Q1

REPORT INFORMATION
  Report Type: Report from Study
  Country: FR (occurrence: FR)
  Receive Date: 20200521
  Receipt Date: 20220103
  Transmission Date: 20220424
  Serious: No
  Sender: FDA-Public Use
  Company Number: FR-FEDR-MF-002-2581001-20200518-0001SG

PATIENT
  Age: 77 Year
  Sex: Female
  Weight: 38 kg

DRUGS (8)
  1. FEDRATINIB [Suspect]
     Active Substance: FEDRATINIB
     Indication: Myelofibrosis
     Dosage: 400 MG X 1 X 1 DAYS
     Route: 048
     Dates: start: 20200113, end: 20200209
  2. FEDRATINIB [Suspect]
     Active Substance: FEDRATINIB
     Dosage: 400 MG X 1 X 1 DAYS
     Route: 048
     Dates: start: 20200210, end: 20200308
  3. FEDRATINIB [Suspect]
     Active Substance: FEDRATINIB
     Dosage: 400 MG X 1 X 1 DAYS
     Route: 048
     Dates: start: 20200309, end: 20200405
  4. FEDRATINIB [Suspect]
     Active Substance: FEDRATINIB
     Dosage: 400 MG X 1 X 1 DAYS
     Route: 048
     Dates: start: 20200406, end: 20200503
  5. FEDRATINIB [Suspect]
     Active Substance: FEDRATINIB
     Dosage: 400 MG X 1 X 1 DAYS
     Route: 048
     Dates: start: 20200504, end: 20200517
  6. FEDRATINIB [Suspect]
     Active Substance: FEDRATINIB
     Dosage: 300 MG X 1 X 1 DAYS
     Route: 048
     Dates: start: 20200518, end: 20200601
  7. FEDRATINIB [Suspect]
     Active Substance: FEDRATINIB
     Dosage: 300 MG X 1 X 1 DAYS
     Route: 048
     Dates: start: 20200602, end: 20200628
  8. FEDRATINIB [Suspect]
     Active Substance: FEDRATINIB
     Dosage: 300 MG X 1 X 1 DAYS
     Route: 048
     Dates: start: 20200629, end: 20200707

REACTIONS (1)
  - Vitamin B1 decreased [Recovered/Resolved]

NARRATIVE: CASE EVENT DATE: 20200506
